FAERS Safety Report 15898636 (Version 1)
Quarter: 2019Q1

REPORT INFORMATION
  Report Type: Spontaneous
  Country: IT (occurrence: IT)
  Receive Date: 20190201
  Receipt Date: 20190201
  Transmission Date: 20190417
  Serious: Yes (Death)
  Sender: FDA-Public Use
  Company Number: IT-ACCORD-104659

PATIENT
  Age: 68 Year
  Sex: Male
  Weight: 105 kg

DRUGS (6)
  1. CARBOPLATIN. [Suspect]
     Active Substance: CARBOPLATIN
     Indication: LUNG NEOPLASM MALIGNANT
     Dates: start: 20180112
  2. ALOXI [Concomitant]
     Active Substance: PALONOSETRON HYDROCHLORIDE
     Dosage: STRENGTH : 500 MICROGRAMS
  3. RANITIDINE. [Concomitant]
     Active Substance: RANITIDINE
  4. SOLDESAM [Concomitant]
     Active Substance: DEXAMETHASONE
  5. ETOPOSIDE. [Suspect]
     Active Substance: ETOPOSIDE
     Indication: LUNG NEOPLASM MALIGNANT
     Dates: start: 20180112
  6. EMEND [Concomitant]
     Active Substance: APREPITANT

REACTIONS (1)
  - Enterovesical fistula [Fatal]

NARRATIVE: CASE EVENT DATE: 20180219
